FAERS Safety Report 9556941 (Version 2)
Quarter: 2014Q2

REPORT INFORMATION
  Report Type: Spontaneous
  Country: US (occurrence: US)
  Receive Date: 20130926
  Receipt Date: 20140501
  Transmission Date: 20141212
  Serious: Yes (Hospitalization, Other)
  Sender: FDA-Public Use
  Company Number: US-BAYER-2013-115539

PATIENT
  Age: 24 Year
  Sex: Female
  Weight: 81.65 kg

DRUGS (7)
  1. YASMIN [Suspect]
     Dosage: UNK
     Dates: start: 200611, end: 20070108
  2. YAZ [Suspect]
     Dosage: UNK
     Dates: start: 200611, end: 20070108
  3. OCELLA [Suspect]
     Dosage: UNK
     Dates: start: 200611, end: 20070108
  4. GLUCOPHAGE [Concomitant]
     Indication: POLYCYSTIC OVARIES
     Dosage: 500 MG 2 TABLETS IN MORNING AND 1 TABLET IN EVENING
  5. ZOLOFT [Concomitant]
  6. VENTOLINE [Concomitant]
     Dosage: 2 PUFF(S), PRN
     Route: 055
  7. DARVOCET-N [Concomitant]
     Indication: PAIN

REACTIONS (10)
  - Pulmonary embolism [None]
  - Deep vein thrombosis [None]
  - Thrombophlebitis superficial [None]
  - Deep vein thrombosis [None]
  - Injury [None]
  - Pain [None]
  - Emotional distress [None]
  - General physical health deterioration [None]
  - Anxiety [None]
  - Pain [None]
